FAERS Safety Report 9581424 (Version 2)
Quarter: 2013Q4

REPORT INFORMATION
  Report Type: Report from Study
  Country: BR (occurrence: BR)
  Receive Date: 20131002
  Receipt Date: 20131209
  Transmission Date: 20140711
  Serious: Yes (Death, Other)
  Sender: FDA-Public Use
  Company Number: PHHY2013BR109649

PATIENT
  Sex: Female

DRUGS (3)
  1. EXELON PATCH [Suspect]
     Indication: DEMENTIA ALZHEIMER^S TYPE
     Dosage: 1 PATCH DAILY
     Route: 062
     Dates: start: 201306
  2. ALOIS [Concomitant]
  3. RISPERIDONE [Concomitant]

REACTIONS (3)
  - Pneumonia [Fatal]
  - Emphysema [Fatal]
  - Depression [Unknown]
